FAERS Safety Report 4697263-4 (Version None)
Quarter: 2005Q2

REPORT INFORMATION
  Report Type: 
  Country: None (occurrence: None)
  Receive Date: 20050620
  Receipt Date: 20050602
  Transmission Date: 20051028
  Serious: No
  Sender: FDA-Public Use
  Company Number: DSA_26576_2005

PATIENT
  Sex: 0

DRUGS (2)
  1. EPROSARTAN [Suspect]
     Indication: HYPERTENSION
     Dosage: 600 MG Q DAY PO
     Route: 048
  2. DOXAZOSIN [Suspect]
     Dosage: DF

REACTIONS (4)
  - ASTHENIA [None]
  - DIARRHOEA [None]
  - HAEMATEMESIS [None]
  - HAEMATOCRIT DECREASED [None]
